FAERS Safety Report 8505164-6 (Version None)
Quarter: 2012Q3

REPORT INFORMATION
  Report Type: 
  Country: None (occurrence: None)
  Receive Date: 20120712
  Receipt Date: 20100805
  Transmission Date: 20120928
  Serious: Yes (Hospitalization, Disabling)
  Sender: FDA-Public Use
  Company Number: GB-RANBAXY-2010RR-34102

PATIENT
  Age: 70 Year
  Sex: Male

DRUGS (16)
  1. ASPIRIN [Suspect]
     Dosage: 75 MG, QD
  2. CIPROFLOXACIN [Suspect]
     Indication: CHALAZION
  3. CLOPIDOGREL [Suspect]
     Indication: CHEST PAIN
     Dosage: 300 MG, UNK
     Route: 048
  4. CLOPIDOGREL [Suspect]
     Dosage: 75 MG, QD
  5. MEROPENEM [Suspect]
     Indication: CELLULITIS
     Dosage: 2 G, BID
     Route: 042
  6. METRONIDAZOLE [Suspect]
     Indication: CHALAZION
     Dosage: 400 MG, TID
     Route: 048
  7. HEPARIN [Concomitant]
     Route: 042
  8. MEROPENEM [Concomitant]
     Dosage: 2 G, BID
     Route: 051
  9. TEICOPLANIN [Suspect]
     Indication: CELLULITIS
     Dosage: 400 MG, QD
     Route: 030
  10. WARFARIN SODIUM [Suspect]
     Indication: PULMONARY EMBOLISM
  11. VITAMIN K TAB [Concomitant]
  12. METRONIDAZOLE [Suspect]
     Indication: CELLULITIS
     Dosage: 250 MG, QID
     Route: 048
  13. ERYTHROMYCIN [Suspect]
     Indication: CELLULITIS
     Dosage: 250 MG, QID
     Route: 048
  14. TEICOPLANIN [Concomitant]
     Dosage: 400 MG, QD
     Route: 030
  15. ASPIRIN [Suspect]
     Dosage: 300 MG, UNK
  16. CIPROFLOXACIN [Suspect]
     Indication: CELLULITIS
     Dosage: 750 MG, BID
     Route: 048

REACTIONS (10)
  - HYPHAEMA [None]
  - EYE PAIN [None]
  - NAUSEA [None]
  - INTRAOCULAR PRESSURE INCREASED [None]
  - DRUG INTERACTION [None]
  - DECREASED APPETITE [None]
  - INTERNATIONAL NORMALISED RATIO INCREASED [None]
  - COAGULATION TIME PROLONGED [None]
  - PYREXIA [None]
  - HEADACHE [None]
